FAERS Safety Report 5684722-0 (Version None)
Quarter: 2008Q1

REPORT INFORMATION
  Report Type: 
  Country: None (occurrence: None)
  Receive Date: 20080328
  Receipt Date: 20070803
  Transmission Date: 20080703
  Serious: Yes (Other)
  Sender: FDA-Public Use
  Company Number: US-BRISTOL-MYERS SQUIBB COMPANY-13863832

PATIENT
  Age: 25 Year
  Sex: Female
  Weight: 59 kg

DRUGS (7)
  1. ERBITUX [Suspect]
     Route: 042
     Dates: start: 20070723
  2. CISPLATIN [Concomitant]
     Route: 042
     Dates: start: 20070723
  3. ALOXI [Concomitant]
     Route: 042
     Dates: start: 20070723
  4. BENADRYL [Concomitant]
     Route: 042
     Dates: start: 20070723
  5. DECADRON [Concomitant]
     Route: 042
  6. DECADRON [Concomitant]
     Route: 042
     Dates: start: 20070723
  7. OXYCONTIN [Concomitant]

REACTIONS (6)
  - CHEST DISCOMFORT [None]
  - ERYTHEMA [None]
  - FLUSHING [None]
  - INFUSION RELATED REACTION [None]
  - RASH [None]
  - WHEEZING [None]
